FAERS Safety Report 6170113-5 (Version None)
Quarter: 2009Q2

REPORT INFORMATION
  Report Type: 
  Country: None (occurrence: None)
  Receive Date: 20090428
  Receipt Date: 20090423
  Transmission Date: 20091009
  Serious: Yes (Hospitalization)
  Sender: FDA-Public Use
  Company Number: B0571392A

PATIENT
  Age: 5 Day
  Sex: Male

DRUGS (1)
  1. RETROVIR [Suspect]
     Indication: ANTIVIRAL PROPHYLAXIS
     Dosage: 2.8MG TWICE PER DAY
     Route: 042
     Dates: start: 20090309, end: 20090317

REACTIONS (2)
  - INCORRECT DOSE ADMINISTERED [None]
  - THROMBOCYTOPENIA [None]
